FAERS Safety Report 10206193 (Version 1)
Quarter: 2014Q2

REPORT INFORMATION
  Report Type: Spontaneous
  Country: US (occurrence: None)
  Receive Date: 20140528
  Receipt Date: 20140528
  Transmission Date: 20141212
  Serious: Yes (Hospitalization)
  Sender: FDA-Public Use
  Company Number: None

PATIENT
  Age: 56 Year
  Sex: Female

DRUGS (4)
  1. ISONICOTINYLHYDRAZINE(INH) [Suspect]
     Dates: start: 20120624, end: 20121115
  2. INH [Suspect]
     Indication: ANTIBIOTIC PROPHYLAXIS
     Dates: start: 20120624, end: 20121101
  3. FLONASE [Concomitant]
  4. ALBUTEROL [Concomitant]

REACTIONS (20)
  - Drug-induced liver injury [None]
  - Heart rate increased [None]
  - Dizziness [None]
  - Paraesthesia [None]
  - Alanine aminotransferase increased [None]
  - Chromaturia [None]
  - Oedema peripheral [None]
  - Abdominal discomfort [None]
  - Nausea [None]
  - Vomiting [None]
  - Ocular icterus [None]
  - Aspartate aminotransferase increased [None]
  - Blood bilirubin increased [None]
  - Antinuclear antibody positive [None]
  - Confusional state [None]
  - Hepatic encephalopathy [None]
  - Poor quality sleep [None]
  - Toxicity to various agents [None]
  - Hepatic fibrosis [None]
  - Blood alkaline phosphatase increased [None]
